FAERS Safety Report 8219287-2 (Version None)
Quarter: 2012Q1

REPORT INFORMATION
  Report Type: 
  Country: None (occurrence: None)
  Receive Date: 20120319
  Receipt Date: 20120310
  Transmission Date: 20120608
  Serious: Yes (Other)
  Sender: FDA-Public Use
  Company Number: US-PURDUE-USA-2012-0083655

PATIENT
  Age: 55 Year
  Sex: Male
  Weight: 124.72 kg

DRUGS (1)
  1. BUTRANS [Suspect]
     Indication: PAIN
     Dosage: 10 MCG, Q1H
     Route: 062
     Dates: start: 20120201, end: 20120310

REACTIONS (6)
  - PNEUMONIA [None]
  - CHEST PAIN [None]
  - INSOMNIA [None]
  - DYSPNOEA [None]
  - PLEURAL EFFUSION [None]
  - COUGH [None]
